FAERS Safety Report 6188798-6 (Version None)
Quarter: 2009Q2

REPORT INFORMATION
  Report Type: 
  Country: None (occurrence: None)
  Receive Date: 20090513
  Receipt Date: 20090506
  Transmission Date: 20091009
  Serious: Yes (Hospitalization)
  Sender: FDA-Public Use
  Company Number: CO-PFIZER INC-2009210560

PATIENT
  Age: 82 Year

DRUGS (3)
  1. ACCURETIC [Suspect]
     Dosage: 20 MG, 1X/DAY
     Route: 048
  2. NORVASC [Suspect]
     Dosage: 5 MG, 1X/DAY
     Route: 048
  3. METOPROLOL TARTRATE [Concomitant]
     Dosage: 50 MG, 1X/DAY

REACTIONS (1)
  - HYPERTENSION [None]
